FAERS Safety Report 21549835 (Version 2)
Quarter: 2022Q4

REPORT INFORMATION
  Report Type: Report from Study
  Country: FR (occurrence: FR)
  Receive Date: 20221103
  Receipt Date: 20221107
  Transmission Date: 20230112
  Serious: Yes (Death)
  Sender: FDA-Public Use
  Company Number: FR-DSJP-DSU-2022-139957

PATIENT
  Age: 62 Year
  Sex: Male
  Weight: 82 kg

DRUGS (2)
  1. FAM-TRASTUZUMAB DERUXTECAN-NXKI [Suspect]
     Active Substance: FAM-TRASTUZUMAB DERUXTECAN-NXKI
     Indication: Non-small cell lung cancer metastatic
     Dosage: 5.4 MG/KG, ONCE EVERY 3 WK
     Route: 042
     Dates: start: 20221020, end: 20221020
  2. PEMBROLIZUMAB [Suspect]
     Active Substance: PEMBROLIZUMAB
     Indication: Non-small cell lung cancer metastatic
     Dosage: 200 MG, ONCE EVERY 3 WK
     Route: 042
     Dates: start: 20221020, end: 20221020

REACTIONS (1)
  - Death [Fatal]

NARRATIVE: CASE EVENT DATE: 20221027
